FAERS Safety Report 7458141-0 (Version None)
Quarter: 2011Q2

REPORT INFORMATION
  Report Type: 
  Country: None (occurrence: None)
  Receive Date: 20110504
  Receipt Date: 20110419
  Transmission Date: 20111010
  Serious: Yes (Other)
  Sender: FDA-Public Use
  Company Number: PHHY2011US34463

PATIENT
  Age: 57 Year
  Sex: Male

DRUGS (6)
  1. RECLAST [Suspect]
     Dosage: 5 MG,
     Route: 042
     Dates: start: 20110317
  2. VITAMIN B-12 [Concomitant]
  3. RITALIN [Concomitant]
  4. LISINOPRIL [Concomitant]
  5. BUSPAR [Concomitant]
  6. PRAVASTATIN [Concomitant]

REACTIONS (15)
  - SPEECH DISORDER [None]
  - NECK PAIN [None]
  - DYSPNOEA [None]
  - TREMOR [None]
  - DISCOMFORT [None]
  - MUSCLE SPASMS [None]
  - CHEST PAIN [None]
  - OESOPHAGEAL PAIN [None]
  - CRYING [None]
  - WEIGHT DECREASED [None]
  - PAIN [None]
  - MUSCULOSKELETAL PAIN [None]
  - HEADACHE [None]
  - ABDOMINAL PAIN UPPER [None]
  - PYREXIA [None]
